FAERS Safety Report 23867509 (Version 1)
Quarter: 2024Q2

REPORT INFORMATION
  Report Type: Spontaneous
  Country: US (occurrence: US)
  Receive Date: 20240517
  Receipt Date: 20240517
  Transmission Date: 20240716
  Serious: No
  Sender: FDA-Public Use
  Company Number: US-PFIZER INC-202400108662

PATIENT
  Age: 84 Year
  Sex: Female

DRUGS (6)
  1. XELJANZ XR [Suspect]
     Active Substance: TOFACITINIB CITRATE
     Dosage: 11MG PER DAY ORALLY
     Route: 048
     Dates: start: 202402
  2. XELJANZ [Suspect]
     Active Substance: TOFACITINIB CITRATE
     Dosage: 5 MG TWICE A DAY
     Dates: start: 201909, end: 202402
  3. ALBUTEROL SULFATE [Concomitant]
     Active Substance: ALBUTEROL SULFATE
     Dosage: UNK
  4. CALCIUM [Concomitant]
     Active Substance: CALCIUM
     Dosage: OYSTER SHELL CALCIUM 500
  5. VIT D [VITAMIN D NOS] [Concomitant]
     Dosage: D 1000
  6. PRILOSEC [Concomitant]
     Active Substance: OMEPRAZOLE MAGNESIUM
     Dosage: PRILOSEC OTC

REACTIONS (6)
  - Drug ineffective [Unknown]
  - Vomiting [Unknown]
  - Diarrhoea [Unknown]
  - Pain [Not Recovered/Not Resolved]
  - Peripheral swelling [Unknown]
  - Arthralgia [Not Recovered/Not Resolved]
